FAERS Safety Report 10802369 (Version 1)
Quarter: 2015Q1

REPORT INFORMATION
  Report Type: Spontaneous
  Country: FR (occurrence: FR)
  Receive Date: 20150217
  Receipt Date: 20150217
  Transmission Date: 20150721
  Serious: Yes (Other)
  Sender: FDA-Public Use
  Company Number: FR-TEVA-540791ISR

PATIENT
  Sex: Female

DRUGS (1)
  1. SIMVASTATINE [Suspect]
     Active Substance: SIMVASTATIN

REACTIONS (1)
  - Dementia Alzheimer^s type [Unknown]
